FAERS Safety Report 15615939 (Version 1)
Quarter: 2018Q4

REPORT INFORMATION
  Report Type: Spontaneous
  Country: JP (occurrence: JP)
  Receive Date: 20181114
  Receipt Date: 20181114
  Transmission Date: 20190205
  Serious: Yes (Life-Threatening, Hospitalization, Other)
  Sender: FDA-Public Use
  Company Number: JP-ACCORD-092083

PATIENT
  Age: 28 Year
  Sex: Female

DRUGS (7)
  1. ETOPOSIDE. [Suspect]
     Active Substance: ETOPOSIDE
     Indication: MYXOFIBROSARCOMA
     Dosage: 13 CYCLES
  2. IFOSFAMIDE. [Suspect]
     Active Substance: IFOSFAMIDE
     Indication: MYXOFIBROSARCOMA
  3. CARBOPLATIN. [Suspect]
     Active Substance: CARBOPLATIN
     Indication: MYXOFIBROSARCOMA
  4. ETOPOSIDE. [Suspect]
     Active Substance: ETOPOSIDE
     Indication: MYXOFIBROSARCOMA
  5. IFOSFAMIDE. [Suspect]
     Active Substance: IFOSFAMIDE
     Indication: MYXOFIBROSARCOMA
  6. CARBOPLATIN. [Suspect]
     Active Substance: CARBOPLATIN
     Indication: MYXOFIBROSARCOMA
  7. DOXORUBICIN [Suspect]
     Active Substance: DOXORUBICIN
     Indication: MYXOFIBROSARCOMA

REACTIONS (1)
  - Acute promyelocytic leukaemia [Recovering/Resolving]
